FAERS Safety Report 19750062 (Version 1)
Quarter: 2021Q3

REPORT INFORMATION
  Report Type: Spontaneous
  Country: US (occurrence: US)
  Receive Date: 20210824
  Receipt Date: 20210824
  Transmission Date: 20211014
  Serious: Yes (Hospitalization)
  Sender: FDA-Public Use
  Company Number: None

PATIENT
  Age: 14 Year
  Sex: Female

DRUGS (2)
  1. TOBRAMYCIN MDV (2ML/VL) 80MG/2ML APP/FRESENIUS KABI [Suspect]
     Active Substance: TOBRAMYCIN
     Indication: CHRONIC OBSTRUCTIVE PULMONARY DISEASE
     Dosage: ?          OTHER DOSE:2 VIALS;OTHER FREQUENCY:20 DAYS ON/OFF;OTHER ROUTE:NEBULIZED?
  2. TOBRAMYCIN MDV (2ML/VL) 80MG/2ML APP/FRESENIUS KABI [Suspect]
     Active Substance: TOBRAMYCIN
     Indication: TRACHEITIS OBSTRUCTIVE
     Dosage: ?          OTHER DOSE:2 VIALS;OTHER FREQUENCY:20 DAYS ON/OFF;OTHER ROUTE:NEBULIZED?

REACTIONS (2)
  - Seizure [None]
  - Vital functions abnormal [None]

NARRATIVE: CASE EVENT DATE: 20210601
